FAERS Safety Report 10560840 (Version 2)
Quarter: 2014Q4

REPORT INFORMATION
  Report Type: Other
  Country: US (occurrence: US)
  Receive Date: 20141103
  Receipt Date: 20141118
  Transmission Date: 20150529
  Serious: Yes (Hospitalization, Other)
  Sender: FDA-Public Use
  Company Number: US-SHIRE-US201407486

PATIENT
  Age: 6 Year
  Sex: Male

DRUGS (1)
  1. ELAPRASE [Suspect]
     Active Substance: IDURSULFASE
     Indication: MUCOPOLYSACCHARIDOSIS
     Dosage: 12 MG (2 VIALS), 1X/WEEK
     Route: 041
     Dates: start: 20120130

REACTIONS (2)
  - Sepsis [Recovered/Resolved]
  - Enterobacter infection [Recovered/Resolved]

NARRATIVE: CASE EVENT DATE: 201410
